FAERS Safety Report 24894632 (Version 1)
Quarter: 2025Q1

REPORT INFORMATION
  Report Type: Spontaneous
  Country: CN (occurrence: CN)
  Receive Date: 20250128
  Receipt Date: 20250128
  Transmission Date: 20250408
  Serious: Yes (Other)
  Sender: Haleon PLC
  Company Number: CN-HALEON-2225039

PATIENT
  Age: 33 Year
  Sex: Female

DRUGS (7)
  1. ACETAMINOPHEN [Suspect]
     Active Substance: ACETAMINOPHEN
     Indication: Pyrexia
  2. MAGNESIUM SULFATE [Suspect]
     Active Substance: MAGNESIUM SULFATE
     Indication: Prophylaxis
  3. ATOSIBAN [Suspect]
     Active Substance: ATOSIBAN
     Indication: Premature labour
  4. DROTAVERINE [Suspect]
     Active Substance: DROTAVERINE
     Indication: Prophylaxis
  5. LOSARTAN POTASSIUM [Suspect]
     Active Substance: LOSARTAN POTASSIUM
     Indication: Prophylaxis
  6. CEFAZOLIN SODIUM [Suspect]
     Active Substance: CEFAZOLIN SODIUM
     Indication: Prophylaxis
  7. CEFUROXIME [Suspect]
     Active Substance: CEFUROXIME
     Indication: Prophylaxis

REACTIONS (2)
  - Foetal death [Unknown]
  - Exposure during pregnancy [Unknown]

NARRATIVE: CASE EVENT DATE: 20230803
